FAERS Safety Report 25051082 (Version 1)
Quarter: 2025Q1

REPORT INFORMATION
  Report Type: Spontaneous
  Country: US (occurrence: US)
  Receive Date: 20250307
  Receipt Date: 20250307
  Transmission Date: 20250408
  Serious: No
  Sender: TEVA
  Company Number: US-TEVA-VS-3301585

PATIENT
  Age: 80 Year
  Sex: Female

DRUGS (12)
  1. AUSTEDO [Suspect]
     Active Substance: DEUTETRABENAZINE
     Indication: Tardive dyskinesia
     Route: 048
     Dates: start: 20240422, end: 20250210
  2. ATENOLOL [Concomitant]
     Active Substance: ATENOLOL
     Indication: Hypertension
  3. MEMANTINE [Concomitant]
     Active Substance: MEMANTINE
     Indication: Dementia Alzheimer^s type
  4. DIVALPROEX SODIUM [Concomitant]
     Active Substance: DIVALPROEX SODIUM
     Indication: Bipolar disorder
  5. VITAMIN C [Concomitant]
     Active Substance: ASCORBIC ACID
     Indication: Hypovitaminosis
  6. ZINC [Concomitant]
     Active Substance: ZINC
     Indication: Hypovitaminosis
  7. MINERALS\VITAMINS [Concomitant]
     Active Substance: MINERALS\VITAMINS
     Indication: Hypovitaminosis
  8. ATORVASTATIN [Concomitant]
     Active Substance: ATORVASTATIN
     Indication: Hypercholesterolaemia
  9. MIRTAZAPINE [Concomitant]
     Active Substance: MIRTAZAPINE
     Indication: Affective disorder
  10. CALCIUM\VITAMIN D [Concomitant]
     Active Substance: CALCIUM\VITAMIN D
     Indication: Hypovitaminosis
  11. IBUPROFEN [Concomitant]
     Active Substance: IBUPROFEN
     Indication: Pain
  12. VITAMINS [Concomitant]
     Active Substance: VITAMINS
     Indication: Hypovitaminosis

REACTIONS (2)
  - Rash [Recovered/Resolved]
  - Product use issue [Unknown]
